FAERS Safety Report 17429353 (Version 1)
Quarter: 2020Q1

REPORT INFORMATION
  Report Type: Spontaneous
  Country: DE (occurrence: DE)
  Receive Date: 20200218
  Receipt Date: 20200218
  Transmission Date: 20200409
  Serious: Yes (Other)
  Sender: FDA-Public Use
  Company Number: DE-MYLANLABS-2020M1016329

PATIENT
  Sex: Female

DRUGS (4)
  1. LETROZOLE. [Suspect]
     Active Substance: LETROZOLE
     Indication: BREAST CANCER METASTATIC
     Dosage: UNK
     Route: 065
     Dates: start: 201712, end: 201803
  2. TAMOXIFEN [Suspect]
     Active Substance: TAMOXIFEN
     Indication: BREAST CANCER METASTATIC
     Dosage: 20 MG
     Route: 065
     Dates: start: 2014, end: 201712
  3. PALBOCICLIB [Concomitant]
     Active Substance: PALBOCICLIB
     Indication: PRODUCT USED FOR UNKNOWN INDICATION
     Dosage: 100 MG
     Route: 065
     Dates: start: 201712, end: 201803
  4. ZOLEDRONIC ACID [Suspect]
     Active Substance: ZOLEDRONIC ACID
     Indication: BREAST CANCER METASTATIC
     Dosage: UNK UNK, Q3MO
     Route: 065
     Dates: start: 201712, end: 201803

REACTIONS (4)
  - Malignant neoplasm progression [Unknown]
  - Metastases to liver [Unknown]
  - Metastases to bone [Unknown]
  - Breast cancer metastatic [Unknown]

NARRATIVE: CASE EVENT DATE: 20171013
